FAERS Safety Report 21235853 (Version 1)
Quarter: 2022Q3

REPORT INFORMATION
  Report Type: Spontaneous
  Country: IL (occurrence: IL)
  Receive Date: 20220821
  Receipt Date: 20220821
  Transmission Date: 20221027
  Serious: Yes (Hospitalization, Other)
  Sender: FDA-Public Use
  Company Number: IL-BoehringerIngelheim-2022-BI-188072

PATIENT
  Age: 64 Year
  Sex: Male

DRUGS (1)
  1. JARDIANCE [Suspect]
     Active Substance: EMPAGLIFLOZIN
     Indication: Product used for unknown indication
     Route: 065

REACTIONS (1)
  - Diabetic ketoacidosis [Recovered/Resolved]
